FAERS Safety Report 21719092 (Version 1)
Quarter: 2022Q4

REPORT INFORMATION
  Report Type: Spontaneous
  Country: US (occurrence: US)
  Receive Date: 20221213
  Receipt Date: 20221213
  Transmission Date: 20230113
  Serious: No
  Sender: FDA-Public Use
  Company Number: US-ALVOGEN-2022088536

PATIENT
  Age: 35 Year
  Sex: Male

DRUGS (1)
  1. LOREEV XR [Suspect]
     Active Substance: LORAZEPAM
     Indication: Anxiety
     Dosage: HAD BEEN ON IT FOR ABOUT 2 WEEKS.
     Dates: start: 202210

REACTIONS (1)
  - Urticaria [Unknown]
